FAERS Safety Report 7977591-7 (Version None)
Quarter: 2011Q4

REPORT INFORMATION
  Report Type: 
  Country: None (occurrence: None)
  Receive Date: 20111214
  Receipt Date: 20111123
  Transmission Date: 20120403
  Serious: No
  Sender: FDA-Public Use
  Company Number: US-AMGEN-TCS411298

PATIENT
  Age: 44 Year
  Sex: Male

DRUGS (2)
  1. ENBREL [Suspect]
     Indication: PSORIASIS
     Dosage: 50 MG, 2 TIMES/WK
     Route: 058
     Dates: start: 20050101, end: 20110907
  2. HUMIRA [Concomitant]
     Indication: PSORIASIS
     Dosage: UNK
     Dates: start: 20110101

REACTIONS (5)
  - THERAPEUTIC RESPONSE DECREASED [None]
  - PSORIASIS [None]
  - DRUG INEFFECTIVE [None]
  - INSOMNIA [None]
  - LOWER RESPIRATORY TRACT INFECTION [None]
